FAERS Safety Report 17547535 (Version 1)
Quarter: 2020Q1

REPORT INFORMATION
  Report Type: Spontaneous
  Country: JP (occurrence: JP)
  Receive Date: 20200316
  Receipt Date: 20200316
  Transmission Date: 20200409
  Serious: Yes (Hospitalization)
  Sender: FDA-Public Use
  Company Number: JP-PURDUE PHARMA-GBR-2020-0075691

PATIENT
  Age: 90 Year
  Sex: Female

DRUGS (1)
  1. NORSPAN [Suspect]
     Active Substance: BUPRENORPHINE
     Indication: ARTHRALGIA
     Dosage: 2.5 MCG, Q1H (STRENGTH 5MG)
     Route: 062

REACTIONS (3)
  - Decreased appetite [Unknown]
  - Wrong technique in product usage process [Unknown]
  - Uterine haemorrhage [Unknown]
